FAERS Safety Report 6215391-9 (Version None)
Quarter: 2009Q2

REPORT INFORMATION
  Report Type: 
  Country: None (occurrence: None)
  Receive Date: 20090603
  Receipt Date: 20090518
  Transmission Date: 20091009
  Serious: Yes (Hospitalization)
  Sender: FDA-Public Use
  Company Number: APP200900284

PATIENT
  Age: 45 Year
  Sex: Female

DRUGS (2)
  1. CARBOPLATIN [Suspect]
     Indication: SMALL CELL LUNG CANCER STAGE UNSPECIFIED
     Dosage: 60 MG/M2, 1 DOSES ONE WEEK APARAT.
  2. GEMCITABINE [Suspect]
     Indication: SMALL CELL LUNG CANCER STAGE UNSPECIFIED
     Dosage: 1250 MG/M2, 2 DOSES ONE WEEK APART.

REACTIONS (9)
  - EXTENSOR PLANTAR RESPONSE [None]
  - HEART RATE IRREGULAR [None]
  - LETHARGY [None]
  - MENTAL STATUS CHANGES [None]
  - RESPIRATORY RATE DECREASED [None]
  - REVERSIBLE POSTERIOR LEUKOENCEPHALOPATHY SYNDROME [None]
  - STATUS EPILEPTICUS [None]
  - UNRESPONSIVE TO STIMULI [None]
  - VISION BLURRED [None]
